FAERS Safety Report 7506260-2 (Version None)
Quarter: 2011Q2

REPORT INFORMATION
  Report Type: 
  Country: None (occurrence: None)
  Receive Date: 20110526
  Receipt Date: 20110513
  Transmission Date: 20111010
  Serious: Yes (Other)
  Sender: FDA-Public Use
  Company Number: PHHY2011US08638

PATIENT
  Sex: Male

DRUGS (3)
  1. DEXAMETHASONE [Concomitant]
     Dosage: 5 MG, UNK
  2. AFINITOR [Suspect]
     Dosage: 5 MG, UNK
  3. AFINITOR [Suspect]
     Dosage: 10 MG, QD

REACTIONS (7)
  - DERMATITIS CONTACT [None]
  - EYE DISORDER [None]
  - ASTHENIA [None]
  - MALIGNANT MELANOMA [None]
  - SKIN ULCER [None]
  - PRURITUS [None]
  - FATIGUE [None]
